FAERS Safety Report 9335201 (Version 2)
Quarter: 2013Q2

REPORT INFORMATION
  Report Type: Spontaneous
  Country: US (occurrence: US)
  Receive Date: 20130606
  Receipt Date: 20130611
  Transmission Date: 20140414
  Serious: Yes (Other)
  Sender: FDA-Public Use
  Company Number: US-009507513-1305USA017406

PATIENT
  Age: 38 Year
  Sex: Female
  Weight: 68.27 kg

DRUGS (5)
  1. SAPHRIS [Suspect]
     Indication: BIPOLAR DISORDER
     Dosage: 20 MG, AT NIGHT
     Route: 060
     Dates: start: 20110414, end: 20120629
  2. TRAZODONE HYDROCHLORIDE [Concomitant]
     Dosage: UNK
  3. TOPROL XL TABLETS [Concomitant]
     Dosage: UNK
  4. PROTONIX [Concomitant]
     Indication: ABNORMAL BEHAVIOUR
     Dosage: UNK
     Dates: start: 2011
  5. PAXIL [Concomitant]
     Dosage: UNK

REACTIONS (1)
  - Diabetes mellitus [Not Recovered/Not Resolved]
